FAERS Safety Report 11334478 (Version 3)
Quarter: 2015Q4

REPORT INFORMATION
  Report Type: Report from Study
  Country: US (occurrence: US)
  Receive Date: 20150804
  Receipt Date: 20151124
  Transmission Date: 20160304
  Serious: Yes (Hospitalization)
  Sender: FDA-Public Use
  Company Number: US-ACTELION-A-NJ2014-96832

PATIENT
  Age: 64 Year
  Sex: Female

DRUGS (7)
  1. MACITENTAN [Suspect]
     Active Substance: MACITENTAN
     Indication: PULMONARY ARTERIAL HYPERTENSION
     Dosage: 10 MG, QD
     Route: 048
     Dates: start: 20140327
  2. RIOCIGUAT [Concomitant]
     Active Substance: RIOCIGUAT
  3. REVATIO [Concomitant]
     Active Substance: SILDENAFIL CITRATE
  4. TYVASO [Suspect]
     Active Substance: TREPROSTINIL
     Indication: PRODUCT USED FOR UNKNOWN INDICATION
     Dosage: UNK, 5 BREATHS
     Route: 065
     Dates: start: 201507, end: 201507
  5. LASIX [Concomitant]
     Active Substance: FUROSEMIDE
     Dosage: 40 MG, BID
     Route: 048
  6. ADCIRCA [Concomitant]
     Active Substance: TADALAFIL
  7. ASPIRIN. [Concomitant]
     Active Substance: ASPIRIN

REACTIONS (5)
  - Dyspnoea [Unknown]
  - Pulmonary arterial hypertension [Unknown]
  - Atrial fibrillation [Unknown]
  - Pulmonary oedema [Unknown]
  - Oedema [Unknown]

NARRATIVE: CASE EVENT DATE: 20151022
